FAERS Safety Report 8214818-0 (Version None)
Quarter: 2012Q1

REPORT INFORMATION
  Report Type: 
  Country: None (occurrence: None)
  Receive Date: 20120316
  Receipt Date: 20120307
  Transmission Date: 20120608
  Serious: Yes (Other)
  Sender: FDA-Public Use
  Company Number: RU-SANOFI-AVENTIS-2012SA016197

PATIENT
  Sex: Male

DRUGS (2)
  1. CRESTOR [Concomitant]
     Route: 048
  2. PLAVIX [Suspect]
     Indication: THROMBOSIS PROPHYLAXIS
     Route: 048
     Dates: start: 20110113

REACTIONS (2)
  - INCORRECT DRUG ADMINISTRATION DURATION [None]
  - IN-STENT CORONARY ARTERY RESTENOSIS [None]
